FAERS Safety Report 11921036 (Version 1)
Quarter: 2016Q1

REPORT INFORMATION
  Report Type: Spontaneous
  Country: US (occurrence: US)
  Receive Date: 20160115
  Receipt Date: 20160115
  Transmission Date: 20160526
  Serious: No
  Sender: FDA-Public Use
  Company Number: US-ASTELLAS-2015US036774

PATIENT
  Sex: Female

DRUGS (1)
  1. MYRBETRIQ [Suspect]
     Active Substance: MIRABEGRON
     Indication: PRODUCT USED FOR UNKNOWN INDICATION
     Route: 065
     Dates: start: 2014

REACTIONS (6)
  - Dry mouth [Recovered/Resolved]
  - Noninfective gingivitis [Unknown]
  - Rhinorrhoea [Not Recovered/Not Resolved]
  - Gingival hyperplasia [Unknown]
  - Gingival bleeding [Unknown]
  - Gingival erythema [Unknown]
